FAERS Safety Report 6062329-3 (Version None)
Quarter: 2009Q1

REPORT INFORMATION
  Report Type: 
  Country: None (occurrence: None)
  Receive Date: 20090203
  Receipt Date: 20090127
  Transmission Date: 20090719
  Serious: Yes (Life-Threatening)
  Sender: FDA-Public Use
  Company Number: PHHY2009GB00812

PATIENT
  Sex: Female

DRUGS (4)
  1. CLOZARIL [Suspect]
     Indication: SCHIZOPHRENIA
     Dosage: 375 MG DAILY
     Route: 048
     Dates: start: 20021008
  2. MICRONOR [Concomitant]
     Dosage: 1 DF, UNK
  3. MORPHINE [Concomitant]
     Dosage: 40 MG DAILY
  4. LACTULOSE [Concomitant]
     Dosage: 10 ML, DAILY

REACTIONS (2)
  - NEOPLASM [None]
  - NEOPLASM MALIGNANT [None]
